FAERS Safety Report 5810314-6 (Version None)
Quarter: 2008Q3

REPORT INFORMATION
  Report Type: 
  Country: None (occurrence: None)
  Receive Date: 20080715
  Receipt Date: 20080326
  Transmission Date: 20090109
  Serious: No
  Sender: FDA-Public Use
  Company Number: A0717592A

PATIENT
  Age: 30 Year
  Sex: Female

DRUGS (7)
  1. IMITREX [Suspect]
     Indication: MIGRAINE
     Dosage: 100MG AS REQUIRED
     Route: 048
  2. IMITREX [Suspect]
     Dosage: 6MG AS REQUIRED
     Route: 058
     Dates: start: 19940101
  3. GABAPENTIN [Concomitant]
  4. TOPAMAX [Concomitant]
  5. PAROXETINE HCL [Concomitant]
  6. TRAMADOL HCL [Concomitant]
  7. CLONAZEPAM [Concomitant]

REACTIONS (5)
  - BURNING SENSATION [None]
  - CHEST DISCOMFORT [None]
  - HEART RATE INCREASED [None]
  - PARAESTHESIA [None]
  - URTICARIA [None]
